FAERS Safety Report 9009635 (Version 1)
Quarter: 2013Q1

REPORT INFORMATION
  Report Type: Spontaneous
  Country: FR (occurrence: FR)
  Receive Date: 20130110
  Receipt Date: 20130110
  Transmission Date: 20140127
  Serious: Yes (Hospitalization)
  Sender: FDA-Public Use
  Company Number: FR-PFIZER INC-2013003331

PATIENT
  Age: 49 Year
  Sex: Female

DRUGS (6)
  1. SOLU-MEDROL [Suspect]
     Indication: ENDOCRINE OPHTHALMOPATHY
     Dosage: 500 MG, WEEKLY FOR 6 WEEKS
     Route: 042
     Dates: start: 201111
  2. SOLU-MEDROL [Suspect]
     Dosage: 250 MG, WEEKLY FOR 5 WEEKS
     Route: 042
     Dates: end: 201204
  3. MABTHERA [Suspect]
     Indication: ENDOCRINE OPHTHALMOPATHY
     Dosage: UNK, SINGLE
     Route: 042
     Dates: start: 20120717, end: 20120717
  4. MABTHERA [Suspect]
     Dosage: UNK, SINGLE
     Route: 042
     Dates: start: 20120731, end: 20120731
  5. NEO MERCAZOLE [Concomitant]
     Indication: BASEDOW^S DISEASE
     Dosage: 50 UNK, UNK
  6. LEVOTHYROX [Concomitant]
     Indication: BASEDOW^S DISEASE
     Dosage: 150 UG, UNK

REACTIONS (2)
  - Periodontitis [Recovered/Resolved]
  - Tooth fracture [Recovered/Resolved with Sequelae]
